FAERS Safety Report 17010060 (Version 2)
Quarter: 2019Q4

REPORT INFORMATION
  Report Type: Spontaneous
  Country: CA (occurrence: CA)
  Receive Date: 20191108
  Receipt Date: 20191112
  Transmission Date: 20200122
  Serious: Yes (Hospitalization, Other)
  Sender: FDA-Public Use
  Company Number: CA-PFIZER INC-2019117313

PATIENT
  Age: 69 Year
  Sex: Male

DRUGS (4)
  1. XELJANZ [Suspect]
     Active Substance: TOFACITINIB CITRATE
     Indication: RHEUMATOID ARTHRITIS
     Dosage: 5 MG, 2X/DAY
     Route: 048
     Dates: start: 2019, end: 201903
  2. ARAVA [Concomitant]
     Active Substance: LEFLUNOMIDE
     Dosage: 20 MG, UNK(Q)
     Dates: start: 201702
  3. HYDROXYCHLOROQUINE [Concomitant]
     Active Substance: HYDROXYCHLOROQUINE
     Dosage: 400 MG, UNK
     Dates: start: 2016
  4. PREDNISONE. [Concomitant]
     Active Substance: PREDNISONE
     Dosage: 8 MG, DAILY
     Route: 048

REACTIONS (2)
  - Abdominal abscess [Unknown]
  - Infection [Unknown]

NARRATIVE: CASE EVENT DATE: 2019
